FAERS Safety Report 5266172-4 (Version None)
Quarter: 2007Q1

REPORT INFORMATION
  Report Type: 
  Country: None (occurrence: None)
  Receive Date: 20070315
  Receipt Date: 20070306
  Transmission Date: 20070707
  Serious: Yes (Disabling, Other)
  Sender: FDA-Public Use
  Company Number: US-JNJFOC-20070103016

PATIENT
  Sex: Male
  Weight: 65.77 kg

DRUGS (3)
  1. REMICADE [Suspect]
     Route: 042
  2. REMICADE [Suspect]
     Indication: PSORIATIC ARTHROPATHY
     Dosage: DOSE: 5-7 MG/KG
     Route: 042
  3. METHOTREXATE [Concomitant]
     Indication: ARTHRITIS

REACTIONS (2)
  - DEMYELINATING POLYNEUROPATHY [None]
  - NEUROPATHY PERIPHERAL [None]
